FAERS Safety Report 5197925-9 (Version None)
Quarter: 2006Q4

REPORT INFORMATION
  Report Type: 
  Country: None (occurrence: None)
  Receive Date: 20061228
  Receipt Date: 20061219
  Transmission Date: 20070319
  Serious: Yes (Other)
  Sender: FDA-Public Use
  Company Number: 163-20785-06111359

PATIENT
  Age: 53 Year
  Sex: Female
  Weight: 73.0291 kg

DRUGS (13)
  1. THALOMID [Suspect]
     Indication: MULTIPLE MYELOMA
     Dosage: 200 MG, 4 IN 1 D, ORAL
     Route: 048
     Dates: start: 20060901, end: 20061129
  2. ASPIRIN [Concomitant]
  3. AVANDIA [Concomitant]
  4. BACTRIM [Concomitant]
  5. DEXAMETHASONE TAB [Concomitant]
  6. FENTANYL [Concomitant]
  7. LIPITOR [Concomitant]
  8. METFORMIN HCL [Concomitant]
  9. PERICOLACE (PERI-COLACE) [Concomitant]
  10. PREVACID [Concomitant]
  11. REGLAN [Concomitant]
  12. ZOLOFT [Concomitant]
  13. ZOMETA [Concomitant]

REACTIONS (4)
  - BLOOD HUMAN CHORIONIC GONADOTROPIN INCREASED [None]
  - OVARIAN CYST [None]
  - UTERINE DISORDER [None]
  - VASCULAR CALCIFICATION [None]
